FAERS Safety Report 9988841 (Version 1)
Quarter: 2014Q1

REPORT INFORMATION
  Report Type: Report from Study
  Country: US (occurrence: US)
  Receive Date: 20140310
  Receipt Date: 20140310
  Transmission Date: 20141002
  Serious: Yes (Hospitalization)
  Sender: FDA-Public Use
  Company Number: US-JNJFOC-20140218169

PATIENT
  Sex: Male

DRUGS (1)
  1. ZYTIGA [Suspect]
     Indication: PROSTATE CANCER
     Dosage: TOTALLY 1000 MG ONCE DAILY
     Route: 048

REACTIONS (2)
  - Pulmonary thrombosis [Unknown]
  - Carotid artery thrombosis [Unknown]
